FAERS Safety Report 23491063 (Version 1)
Quarter: 2024Q1

REPORT INFORMATION
  Report Type: Report from Study
  Country: US (occurrence: US)
  Receive Date: 20240207
  Receipt Date: 20240207
  Transmission Date: 20240409
  Serious: Yes (Hospitalization, Other)
  Sender: FDA-Public Use
  Company Number: US-ABBVIE-5620319

PATIENT
  Sex: Female

DRUGS (1)
  1. CREON [Suspect]
     Active Substance: PANCRELIPASE AMYLASE\PANCRELIPASE LIPASE\PANCRELIPASE PROTEASE
     Indication: Product used for unknown indication
     Dosage: FORM STRENGTH: 24000?FORM STRENGTH UNITS: UNIT?FREQUENCY TEXT: TAKE WITH MEALS AND SNACKS
     Route: 048
     Dates: end: 20231211

REACTIONS (3)
  - Pancreatic carcinoma [Not Recovered/Not Resolved]
  - Illness [Unknown]
  - Product prescribing error [Unknown]
